FAERS Safety Report 7560628-7 (Version None)
Quarter: 2011Q2

REPORT INFORMATION
  Report Type: 
  Country: None (occurrence: None)
  Receive Date: 20110621
  Receipt Date: 20110620
  Transmission Date: 20111010
  Serious: Yes (Death, Hospitalization)
  Sender: FDA-Public Use
  Company Number: US-CEPHALON-2011002586

PATIENT
  Sex: Male
  Weight: 9 kg

DRUGS (2)
  1. TREANDA [Suspect]
     Indication: ACUTE LEUKAEMIA
     Route: 042
     Dates: start: 20110506, end: 20110507
  2. VORICONAZOLE [Concomitant]

REACTIONS (3)
  - NEUTROPHIL COUNT DECREASED [None]
  - DEVICE RELATED INFECTION [None]
  - ACUTE LEUKAEMIA [None]
